FAERS Safety Report 5374690-3 (Version None)
Quarter: 2007Q2

REPORT INFORMATION
  Report Type: 
  Country: None (occurrence: None)
  Receive Date: 20070627
  Receipt Date: 20070627
  Transmission Date: 20071010
  Serious: Yes (Other)
  Sender: FDA-Public Use
  Company Number: None

PATIENT
  Age: 37 Year
  Sex: Male
  Weight: 48.9 kg

DRUGS (10)
  1. ISOVUE-300 [Suspect]
     Indication: COMPUTERISED TOMOGRAM
     Dosage: 130 ML IV
     Route: 042
     Dates: start: 20061215
  2. ORAL CONTRAST [Suspect]
  3. ACYCLOVIR [Concomitant]
  4. CEFTAZIDIME [Concomitant]
  5. FILGRASTIM [Concomitant]
  6. FLUCONAZOLE [Concomitant]
  7. GABAPENTIN [Concomitant]
  8. LEVOFLOXACIN [Concomitant]
  9. RANITIDINE [Concomitant]
  10. VANCOMYCIN [Concomitant]

REACTIONS (5)
  - ABDOMINAL DISCOMFORT [None]
  - FLUSHING [None]
  - HYPOTENSION [None]
  - PYREXIA [None]
  - TACHYCARDIA [None]
